FAERS Safety Report 5286432-0 (Version None)
Quarter: 2007Q2

REPORT INFORMATION
  Report Type: 
  Country: None (occurrence: None)
  Receive Date: 20070404
  Receipt Date: 20070330
  Transmission Date: 20071010
  Serious: No
  Sender: FDA-Public Use
  Company Number: 2006UW07901

PATIENT
  Age: 563 Month
  Sex: Female
  Weight: 79.5 kg

DRUGS (5)
  1. SEROQUEL [Suspect]
     Indication: BIPOLAR DISORDER
     Route: 048
     Dates: start: 20030805, end: 20060301
  2. GEODON [Concomitant]
  3. THORAZINE [Concomitant]
  4. PROZAC [Concomitant]
  5. CLONOPIN [Concomitant]

REACTIONS (1)
  - DIABETES MELLITUS [None]
